FAERS Safety Report 8509789-3 (Version None)
Quarter: 2012Q3

REPORT INFORMATION
  Report Type: 
  Country: None (occurrence: None)
  Receive Date: 20120703
  Receipt Date: 20120625
  Transmission Date: 20120928
  Serious: Yes (Other)
  Sender: FDA-Public Use
  Company Number: AUR-APL-2012-02830

PATIENT
  Age: 47 Year
  Sex: Female

DRUGS (8)
  1. GLUCOSAMINE (GLUCOSAMINE) [Concomitant]
  2. RAMIPRIL [Suspect]
     Indication: VENOUS OCCLUSION
     Dosage: 5 MG (5 MG, 1 IN 1 D), ORAL
     Route: 048
     Dates: start: 20100601
  3. CLOPIDOGREL [Suspect]
     Indication: VENOUS OCCLUSION
     Dosage: 75 MG (75 MG, 1 IN 1 D), ORAL
     Route: 048
     Dates: start: 20100601
  4. GLIMEPIRIDE [Suspect]
     Indication: DIABETES MELLITUS
     Dosage: 1 MG (1 MG, 1 IN 1 D), ORAL
     Route: 048
     Dates: start: 20070101
  5. PROLIVE (LACTOBACILLUS REUTERI) [Suspect]
     Indication: DIARRHOEA
     Dosage: 1 DOSAGE FORMS (1 DOSAGE FORMS, 1 IN 1 D), ORAL
     Route: 048
     Dates: start: 20120604, end: 20120605
  6. SOMALGIN (ACETYLSALICYLIC ACID) [Concomitant]
  7. METFFORMIN HYDROCHLORIDE [Suspect]
     Indication: DIABETES MELLITUS
     Dosage: 2550 MG (850 MG, 3 IN 1 D), ORAL
     Route: 048
     Dates: start: 20070101
  8. ROSUVASTATIN [Suspect]
     Indication: DIABETES MELLITUS
     Dosage: 10 MG (10 MG, 1 IN 1 D), ORAL
     Route: 048
     Dates: start: 20100601

REACTIONS (6)
  - ABDOMINAL PAIN [None]
  - MEDICATION RESIDUE [None]
  - ARTHRITIS [None]
  - DIARRHOEA [None]
  - VENOUS OCCLUSION [None]
  - DRUG INTERACTION [None]
